FAERS Safety Report 19608884 (Version 1)
Quarter: 2021Q3

REPORT INFORMATION
  Report Type: Spontaneous
  Country: US (occurrence: US)
  Receive Date: 20210721
  Receipt Date: 20210721
  Transmission Date: 20211014
  Serious: No
  Sender: FDA-Public Use
  Company Number: None

PATIENT

DRUGS (2)
  1. MEDROXYPROGESTERONE ACETATE. [Suspect]
     Active Substance: MEDROXYPROGESTERONE ACETATE
  2. ADRENALIN [Suspect]
     Active Substance: EPINEPHRINE

REACTIONS (3)
  - Product appearance confusion [None]
  - Wrong drug [None]
  - Circumstance or information capable of leading to medication error [None]
